FAERS Safety Report 11665104 (Version 2)
Quarter: 2015Q4

REPORT INFORMATION
  Report Type: Spontaneous
  Country: US (occurrence: US)
  Receive Date: 20151027
  Receipt Date: 20151102
  Transmission Date: 20160304
  Serious: No
  Sender: FDA-Public Use
  Company Number: US-HORIZON-ACT-0176-2015

PATIENT
  Age: 50 Year
  Sex: Female

DRUGS (6)
  1. ACTIMMUNE [Suspect]
     Active Substance: INTERFERON GAMMA-1B
     Indication: PULMONARY ARTERIAL HYPERTENSION
     Route: 058
     Dates: start: 20141128
  2. ASPIRIN. [Concomitant]
     Active Substance: ASPIRIN
  3. AZATHIOPRINE. [Concomitant]
     Active Substance: AZATHIOPRINE
  4. MUCINEX [Concomitant]
     Active Substance: GUAIFENESIN
  5. ADEMPAS [Concomitant]
     Active Substance: RIOCIGUAT
  6. LEVAQUIN [Concomitant]
     Active Substance: LEVOFLOXACIN

REACTIONS (1)
  - Dizziness [Recovered/Resolved]

NARRATIVE: CASE EVENT DATE: 20151020
